FAERS Safety Report 8568049-5 (Version None)
Quarter: 2012Q3

REPORT INFORMATION
  Report Type: 
  Country: None (occurrence: None)
  Receive Date: 20120803
  Receipt Date: 20111203
  Transmission Date: 20120928
  Serious: No
  Sender: FDA-Public Use
  Company Number: US-ABBOTT-11P-163-0857466-00

PATIENT
  Sex: Male
  Weight: 111.23 kg

DRUGS (5)
  1. ASPIRIN [Concomitant]
     Indication: PRODUCT USED FOR UNKNOWN INDICATION
  2. NIASPAN [Suspect]
  3. LEXAPRO [Concomitant]
     Indication: ANXIETY
  4. NEXIUM [Concomitant]
     Indication: GASTROOESOPHAGEAL REFLUX PROPHYLAXIS
  5. NIASPAN [Suspect]
     Indication: PRODUCT USED FOR UNKNOWN INDICATION
     Dates: start: 20110901

REACTIONS (5)
  - FEELING HOT [None]
  - DRUG DOSE OMISSION [None]
  - RASH MACULAR [None]
  - ERYTHEMA [None]
  - FLUSHING [None]
